FAERS Safety Report 11900644 (Version 3)
Quarter: 2016Q1

REPORT INFORMATION
  Report Type: Spontaneous
  Country: GB (occurrence: GB)
  Receive Date: 20160108
  Receipt Date: 20160127
  Transmission Date: 20160526
  Serious: Yes (Hospitalization, Disabling, Other)
  Sender: FDA-Public Use
  Company Number: GB-TEVA-623133ACC

PATIENT
  Age: 61 Year
  Sex: Female
  Weight: 112.03 kg

DRUGS (7)
  1. CO-AMILOFRUSE [Concomitant]
     Active Substance: AMILORIDE\FUROSEMIDE
     Dosage: 5MG/40MG
  2. PREDNISOLONE. [Suspect]
     Active Substance: PREDNISOLONE
     Route: 048
     Dates: start: 20150730, end: 20150806
  3. SANDO-K [Concomitant]
     Active Substance: POTASSIUM BICARBONATE\POTASSIUM CHLORIDE
     Dosage: 8 DOSAGE FORMS DAILY;
     Route: 048
     Dates: start: 20150725, end: 20150728
  4. METOCLOPRAMIDE. [Concomitant]
     Active Substance: METOCLOPRAMIDE
  5. CLARITHROMYCIN. [Concomitant]
     Active Substance: CLARITHROMYCIN
     Indication: LUNG INFECTION
     Dates: start: 20150805
  6. SALBUTAMOL [Concomitant]
     Active Substance: ALBUTEROL
     Dosage: NEBULES
     Dates: start: 20150828
  7. AMOXICILLIN. [Concomitant]
     Active Substance: AMOXICILLIN
     Dates: start: 20150723, end: 20150730

REACTIONS (2)
  - Immunosuppression [Not Recovered/Not Resolved]
  - Eosinophilia [Not Recovered/Not Resolved]

NARRATIVE: CASE EVENT DATE: 20150805
